FAERS Safety Report 9636358 (Version 2)
Quarter: 2013Q4

REPORT INFORMATION
  Report Type: Report from Study
  Country: RO (occurrence: RO)
  Receive Date: 20131021
  Receipt Date: 20131217
  Transmission Date: 20140711
  Serious: Yes (Other)
  Sender: FDA-Public Use
  Company Number: RO-ABBVIE-13P-135-1157382-00

PATIENT
  Age: 53 Year
  Sex: Female
  Weight: 70 kg

DRUGS (7)
  1. ZEMPLAR [Suspect]
     Indication: HYPERPARATHYROIDISM SECONDARY
     Route: 048
     Dates: start: 20101130
  2. ZEMPLAR [Suspect]
     Route: 048
     Dates: start: 20110808
  3. AMLODIPIN [Concomitant]
     Indication: PRODUCT USED FOR UNKNOWN INDICATION
     Dates: start: 2006
  4. TIMOLOL [Concomitant]
     Indication: PRODUCT USED FOR UNKNOWN INDICATION
     Dosage: BD
     Dates: start: 2006
  5. AMIODARON [Concomitant]
     Indication: VENTRICULAR ARRHYTHMIA
     Route: 048
     Dates: start: 2009
  6. ACENOCUMAROL [Concomitant]
     Dates: start: 2009
  7. ORAL ANTICOAGULATION DRUG [Concomitant]

REACTIONS (5)
  - Renal cyst infection [Recovering/Resolving]
  - Renal failure acute [Not Recovered/Not Resolved]
  - Azotaemia [Unknown]
  - Hypercatabolism [Unknown]
  - Fibrosis [Unknown]
